FAERS Safety Report 6822277-5 (Version None)
Quarter: 2010Q3

REPORT INFORMATION
  Report Type: 
  Country: None (occurrence: None)
  Receive Date: 20100708
  Receipt Date: 20100625
  Transmission Date: 20110219
  Serious: Yes (Hospitalization, Disabling, Other)
  Sender: FDA-Public Use
  Company Number: US-ELI_LILLY_AND_COMPANY-US201005006514

PATIENT
  Sex: Female

DRUGS (1)
  1. FORTEO [Suspect]
     Indication: OSTEOPOROSIS
     Dates: start: 20090101

REACTIONS (4)
  - GASTROINTESTINAL DISORDER [None]
  - HAEMORRHAGIC STROKE [None]
  - HEMIPARESIS [None]
  - SPEECH DISORDER [None]
